FAERS Safety Report 24745459 (Version 1)
Quarter: 2024Q4

REPORT INFORMATION
  Report Type: Spontaneous
  Country: TR (occurrence: TR)
  Receive Date: 20241217
  Receipt Date: 20241217
  Transmission Date: 20250114
  Serious: Yes (Other)
  Sender: ABBVIE
  Company Number: TR-ABBVIE-6046869

PATIENT
  Age: 46 Year
  Sex: Male

DRUGS (1)
  1. RINVOQ [Suspect]
     Active Substance: UPADACITINIB
     Indication: Dermatitis atopic
     Dosage: FORM STRENGTH: 15 MILLIGRAM
     Route: 048
     Dates: start: 202411, end: 202412

REACTIONS (2)
  - Hypertension [Unknown]
  - Arrhythmia [Unknown]

NARRATIVE: CASE EVENT DATE: 20240101
